FAERS Safety Report 15733224 (Version 1)
Quarter: 2018Q4

REPORT INFORMATION
  Report Type: Spontaneous
  Country: US (occurrence: US)
  Receive Date: 20181218
  Receipt Date: 20181218
  Transmission Date: 20190205
  Serious: No
  Sender: FDA-Public Use
  Company Number: US-TRIS PHARMA, INC.-2018TRISPO01296

PATIENT

DRUGS (1)
  1. QUILLIVANT XR [Suspect]
     Active Substance: METHYLPHENIDATE HYDROCHLORIDE
     Indication: ATTENTION DEFICIT/HYPERACTIVITY DISORDER
     Dosage: 3 ML, QD IN THE MORNING
     Route: 065
     Dates: start: 2016, end: 20181026

REACTIONS (5)
  - Screaming [Not Recovered/Not Resolved]
  - Abnormal behaviour [Unknown]
  - Impulse-control disorder [Not Recovered/Not Resolved]
  - Aggression [Unknown]
  - Product dose omission [Unknown]

NARRATIVE: CASE EVENT DATE: 20181029
